FAERS Safety Report 6898886-4 (Version None)
Quarter: 2010Q3

REPORT INFORMATION
  Report Type: 
  Country: None (occurrence: None)
  Receive Date: 20100802
  Receipt Date: 20071214
  Transmission Date: 20110219
  Serious: No
  Sender: FDA-Public Use
  Company Number: US-PFIZER INC-2007106133

PATIENT
  Sex: Male
  Weight: 111.36 kg

DRUGS (8)
  1. LYRICA [Suspect]
     Indication: FIBROMYALGIA
     Dates: start: 20070801
  2. OXYCODONE [Concomitant]
  3. ACETYLSALICYLIC ACID SRT [Concomitant]
     Dosage: 2 TABLETS
  4. TYLENOL [Concomitant]
  5. IBUPROFEN [Concomitant]
  6. FLEXERIL [Concomitant]
  7. PREVACID [Concomitant]
  8. ATIVAN [Concomitant]

REACTIONS (1)
  - WEIGHT INCREASED [None]
